FAERS Safety Report 25222029 (Version 1)
Quarter: 2025Q2

REPORT INFORMATION
  Report Type: Spontaneous
  Country: ES (occurrence: ES)
  Receive Date: 20250421
  Receipt Date: 20250421
  Transmission Date: 20250716
  Serious: Yes (Hospitalization)
  Sender: MYLAN
  Company Number: ES-JNJFOC-20250387664

PATIENT
  Age: 73 Year
  Sex: Male

DRUGS (76)
  1. AMLODIPINE [Suspect]
     Active Substance: AMLODIPINE BESYLATE
     Indication: Hypertension
  2. AMLODIPINE [Suspect]
     Active Substance: AMLODIPINE BESYLATE
     Route: 065
  3. AMLODIPINE [Suspect]
     Active Substance: AMLODIPINE BESYLATE
     Route: 065
  4. AMLODIPINE [Suspect]
     Active Substance: AMLODIPINE BESYLATE
  5. ENALAPRIL [Suspect]
     Active Substance: ENALAPRIL
     Indication: Product used for unknown indication
  6. ENALAPRIL [Suspect]
     Active Substance: ENALAPRIL
     Route: 065
  7. ENALAPRIL [Suspect]
     Active Substance: ENALAPRIL
     Route: 065
  8. ENALAPRIL [Suspect]
     Active Substance: ENALAPRIL
  9. ERLEADA [Suspect]
     Active Substance: APALUTAMIDE
     Indication: Hormone-dependent prostate cancer
     Dosage: 240 MILLIGRAM, QD
     Dates: start: 20221010
  10. ERLEADA [Suspect]
     Active Substance: APALUTAMIDE
     Dosage: 240 MILLIGRAM, QD
     Route: 048
     Dates: start: 20221010
  11. ERLEADA [Suspect]
     Active Substance: APALUTAMIDE
     Dosage: 240 MILLIGRAM, QD
     Route: 048
     Dates: start: 20221010
  12. ERLEADA [Suspect]
     Active Substance: APALUTAMIDE
     Dosage: 240 MILLIGRAM, QD
     Dates: start: 20221010
  13. GALLIUM GA-68 GOZETOTIDE [Suspect]
     Active Substance: GALLIUM GA-68 GOZETOTIDE
     Indication: Hormone-dependent prostate cancer
     Dosage: 168.8 MEGABECQUEREL, QD
     Dates: start: 20220928, end: 20220928
  14. GALLIUM GA-68 GOZETOTIDE [Suspect]
     Active Substance: GALLIUM GA-68 GOZETOTIDE
     Dosage: 168.8 MEGABECQUEREL, QD
     Route: 042
     Dates: start: 20220928, end: 20220928
  15. GALLIUM GA-68 GOZETOTIDE [Suspect]
     Active Substance: GALLIUM GA-68 GOZETOTIDE
     Dosage: 168.8 MEGABECQUEREL, QD
     Route: 042
     Dates: start: 20220928, end: 20220928
  16. GALLIUM GA-68 GOZETOTIDE [Suspect]
     Active Substance: GALLIUM GA-68 GOZETOTIDE
     Dosage: 168.8 MEGABECQUEREL, QD
     Dates: start: 20220928, end: 20220928
  17. LUTETIUM LU-177 VIPIVOTIDE TETRAXETAN [Suspect]
     Active Substance: LUTETIUM LU-177 VIPIVOTIDE TETRAXETAN
     Indication: Hormone-dependent prostate cancer
     Dosage: 7.18 GIGABECQUEREL, QD
     Dates: start: 20221215
  18. LUTETIUM LU-177 VIPIVOTIDE TETRAXETAN [Suspect]
     Active Substance: LUTETIUM LU-177 VIPIVOTIDE TETRAXETAN
     Dosage: 7.18 GIGABECQUEREL, QD
     Dates: start: 20221215
  19. LUTETIUM LU-177 VIPIVOTIDE TETRAXETAN [Suspect]
     Active Substance: LUTETIUM LU-177 VIPIVOTIDE TETRAXETAN
     Dosage: 7.18 GIGABECQUEREL, QD
     Route: 042
     Dates: start: 20221215
  20. LUTETIUM LU-177 VIPIVOTIDE TETRAXETAN [Suspect]
     Active Substance: LUTETIUM LU-177 VIPIVOTIDE TETRAXETAN
     Dosage: 7.18 GIGABECQUEREL, QD
     Route: 042
     Dates: start: 20221215
  21. LUTETIUM LU-177 VIPIVOTIDE TETRAXETAN [Suspect]
     Active Substance: LUTETIUM LU-177 VIPIVOTIDE TETRAXETAN
     Dosage: 7.03 GIGABECQUEREL, QD
     Dates: start: 20221027
  22. LUTETIUM LU-177 VIPIVOTIDE TETRAXETAN [Suspect]
     Active Substance: LUTETIUM LU-177 VIPIVOTIDE TETRAXETAN
     Dosage: 7.03 GIGABECQUEREL, QD
     Dates: start: 20221027
  23. LUTETIUM LU-177 VIPIVOTIDE TETRAXETAN [Suspect]
     Active Substance: LUTETIUM LU-177 VIPIVOTIDE TETRAXETAN
     Dosage: 7.03 GIGABECQUEREL, QD
     Route: 042
     Dates: start: 20221027
  24. LUTETIUM LU-177 VIPIVOTIDE TETRAXETAN [Suspect]
     Active Substance: LUTETIUM LU-177 VIPIVOTIDE TETRAXETAN
     Dosage: 7.03 GIGABECQUEREL, QD
     Route: 042
     Dates: start: 20221027
  25. ATENOLOL [Suspect]
     Active Substance: ATENOLOL
     Indication: Hypertension
  26. ATENOLOL [Suspect]
     Active Substance: ATENOLOL
     Route: 065
  27. ATENOLOL [Suspect]
     Active Substance: ATENOLOL
     Route: 065
  28. ATENOLOL [Suspect]
     Active Substance: ATENOLOL
  29. ALBUTEROL [Concomitant]
     Active Substance: ALBUTEROL
  30. ALBUTEROL [Concomitant]
     Active Substance: ALBUTEROL
     Route: 065
  31. ALBUTEROL [Concomitant]
     Active Substance: ALBUTEROL
     Route: 065
  32. ALBUTEROL [Concomitant]
     Active Substance: ALBUTEROL
  33. TIOTROPIUM BROMIDE [Concomitant]
     Active Substance: TIOTROPIUM BROMIDE
  34. TIOTROPIUM BROMIDE [Concomitant]
     Active Substance: TIOTROPIUM BROMIDE
     Route: 065
  35. TIOTROPIUM BROMIDE [Concomitant]
     Active Substance: TIOTROPIUM BROMIDE
     Route: 065
  36. TIOTROPIUM BROMIDE [Concomitant]
     Active Substance: TIOTROPIUM BROMIDE
  37. ALLOPURINOL [Concomitant]
     Active Substance: ALLOPURINOL
  38. ALLOPURINOL [Concomitant]
     Active Substance: ALLOPURINOL
     Route: 065
  39. ALLOPURINOL [Concomitant]
     Active Substance: ALLOPURINOL
     Route: 065
  40. ALLOPURINOL [Concomitant]
     Active Substance: ALLOPURINOL
  41. QUETIAPINE [Concomitant]
     Active Substance: QUETIAPINE
  42. QUETIAPINE [Concomitant]
     Active Substance: QUETIAPINE
     Route: 065
  43. QUETIAPINE [Concomitant]
     Active Substance: QUETIAPINE
     Route: 065
  44. QUETIAPINE [Concomitant]
     Active Substance: QUETIAPINE
  45. HALOPERIDOL [Concomitant]
     Active Substance: HALOPERIDOL
  46. HALOPERIDOL [Concomitant]
     Active Substance: HALOPERIDOL
     Route: 065
  47. HALOPERIDOL [Concomitant]
     Active Substance: HALOPERIDOL
     Route: 065
  48. HALOPERIDOL [Concomitant]
     Active Substance: HALOPERIDOL
  49. BROMAZEPAM [Concomitant]
     Active Substance: BROMAZEPAM
  50. BROMAZEPAM [Concomitant]
     Active Substance: BROMAZEPAM
     Route: 065
  51. BROMAZEPAM [Concomitant]
     Active Substance: BROMAZEPAM
     Route: 065
  52. BROMAZEPAM [Concomitant]
     Active Substance: BROMAZEPAM
  53. FENTANYL CITRATE [Concomitant]
     Active Substance: FENTANYL CITRATE
  54. FENTANYL CITRATE [Concomitant]
     Active Substance: FENTANYL CITRATE
     Route: 065
  55. FENTANYL CITRATE [Concomitant]
     Active Substance: FENTANYL CITRATE
     Route: 065
  56. FENTANYL CITRATE [Concomitant]
     Active Substance: FENTANYL CITRATE
  57. FENTANYL [Concomitant]
     Active Substance: FENTANYL
  58. FENTANYL [Concomitant]
     Active Substance: FENTANYL
     Route: 065
  59. FENTANYL [Concomitant]
     Active Substance: FENTANYL
     Route: 065
  60. FENTANYL [Concomitant]
     Active Substance: FENTANYL
  61. FOLIC ACID [Concomitant]
     Active Substance: FOLIC ACID
  62. FOLIC ACID [Concomitant]
     Active Substance: FOLIC ACID
     Route: 065
  63. FOLIC ACID [Concomitant]
     Active Substance: FOLIC ACID
     Route: 065
  64. FOLIC ACID [Concomitant]
     Active Substance: FOLIC ACID
  65. METAMIZOLE [Concomitant]
     Active Substance: METAMIZOLE
  66. METAMIZOLE [Concomitant]
     Active Substance: METAMIZOLE
     Route: 065
  67. METAMIZOLE [Concomitant]
     Active Substance: METAMIZOLE
     Route: 065
  68. METAMIZOLE [Concomitant]
     Active Substance: METAMIZOLE
  69. OMEPRAZOLE [Concomitant]
     Active Substance: OMEPRAZOLE
  70. OMEPRAZOLE [Concomitant]
     Active Substance: OMEPRAZOLE
     Route: 065
  71. OMEPRAZOLE [Concomitant]
     Active Substance: OMEPRAZOLE
     Route: 065
  72. OMEPRAZOLE [Concomitant]
     Active Substance: OMEPRAZOLE
  73. PREDNISONE [Concomitant]
     Active Substance: PREDNISONE
  74. PREDNISONE [Concomitant]
     Active Substance: PREDNISONE
     Route: 065
  75. PREDNISONE [Concomitant]
     Active Substance: PREDNISONE
     Route: 065
  76. PREDNISONE [Concomitant]
     Active Substance: PREDNISONE

REACTIONS (3)
  - Drug reaction with eosinophilia and systemic symptoms [Recovered/Resolved]
  - Acute kidney injury [Recovered/Resolved]
  - Hypotension [Recovered/Resolved]

NARRATIVE: CASE EVENT DATE: 20221123
